FAERS Safety Report 22289439 (Version 1)
Quarter: 2023Q2

REPORT INFORMATION
  Report Type: Spontaneous
  Country: US (occurrence: None)
  Receive Date: 20230504
  Receipt Date: 20230504
  Transmission Date: 20230722
  Serious: No
  Sender: FDA-Public Use
  Company Number: None

PATIENT
  Age: 63 Year
  Sex: Female
  Weight: 47.25 kg

DRUGS (11)
  1. REMICADE [Suspect]
     Active Substance: INFLIXIMAB
     Indication: Crohn^s disease
     Dosage: OTHER FREQUENCY : EVERY 8 WEEKS;?
     Route: 042
  2. OMEPRAZOLE [Concomitant]
     Active Substance: OMEPRAZOLE
  3. lavoxil [Concomitant]
  4. MONTELUKAST [Concomitant]
     Active Substance: MONTELUKAST SODIUM
  5. MINIPRESS [Concomitant]
     Active Substance: PRAZOSIN HYDROCHLORIDE
  6. HYDROXYZINE [Concomitant]
     Active Substance: HYDROXYZINE HYDROCHLORIDE
  7. NORTRIPTYLINE [Concomitant]
     Active Substance: NORTRIPTYLINE
  8. marijuana for medical purposes [Concomitant]
  9. MORPHINE [Concomitant]
     Active Substance: MORPHINE
  10. Liboflavin [Concomitant]
  11. MELATONIN [Concomitant]
     Active Substance: MELATONIN

REACTIONS (2)
  - Substance-induced psychotic disorder [None]
  - Suicide attempt [None]

NARRATIVE: CASE EVENT DATE: 20211101
